FAERS Safety Report 5472997-2 (Version None)
Quarter: 2007Q4

REPORT INFORMATION
  Report Type: 
  Country: None (occurrence: None)
  Receive Date: 20071001
  Receipt Date: 20070413
  Transmission Date: 20080405
  Serious: No
  Sender: FDA-Public Use
  Company Number: US-ASTRAZENECA-2007UW02639

PATIENT
  Sex: Female
  Weight: 46.8 kg

DRUGS (3)
  1. ARIMIDEX [Suspect]
     Indication: BREAST CANCER
     Route: 048
  2. TAMOXIFEN CITRATE [Concomitant]
     Indication: BREAST CANCER
  3. VYTORIN [Concomitant]

REACTIONS (2)
  - DYSPEPSIA [None]
  - OSTEOPOROSIS [None]
